FAERS Safety Report 25609175 (Version 1)
Quarter: 2025Q3

REPORT INFORMATION
  Report Type: Spontaneous
  Country: JP (occurrence: JP)
  Receive Date: 20250727
  Receipt Date: 20250727
  Transmission Date: 20251021
  Serious: Yes (Other)
  Sender: VALIDUS
  Company Number: JP-VALIDUS PHARMACEUTICALS LLC-VLDS-RB-2025-00113

PATIENT

DRUGS (1)
  1. CARBAMAZEPINE [Suspect]
     Active Substance: CARBAMAZEPINE
     Indication: Product used for unknown indication
     Route: 065

REACTIONS (2)
  - Pancreatitis acute [Unknown]
  - Drug reaction with eosinophilia and systemic symptoms [Unknown]
